FAERS Safety Report 13383800 (Version 2)
Quarter: 2017Q3

REPORT INFORMATION
  Report Type: Report from Study
  Country: DE (occurrence: DE)
  Receive Date: 20170329
  Receipt Date: 20170718
  Transmission Date: 20171127
  Serious: Yes (Hospitalization)
  Sender: FDA-Public Use
  Company Number: DE-JNJFOC-20160502807

PATIENT
  Age: 33 Year
  Sex: Female
  Weight: 52.3 kg

DRUGS (8)
  1. SIMPONI [Suspect]
     Active Substance: GOLIMUMAB
     Indication: COLITIS ULCERATIVE
     Route: 058
     Dates: start: 20151106, end: 201610
  2. MONOVO [Concomitant]
     Indication: RASH PRURITIC
     Route: 061
     Dates: start: 20160212, end: 20160214
  3. PENTASA [Concomitant]
     Active Substance: MESALAMINE
     Indication: COLITIS ULCERATIVE
     Route: 048
     Dates: start: 20130714, end: 20170322
  4. AMOXICILLIN. [Concomitant]
     Active Substance: AMOXICILLIN
     Indication: DENTAL DISORDER PROPHYLAXIS
     Route: 065
     Dates: start: 20160504, end: 20160507
  5. BUDESONIDE. [Concomitant]
     Active Substance: BUDESONIDE
     Indication: COLITIS ULCERATIVE
     Route: 065
     Dates: start: 20160730
  6. HYDRODEXAN [Concomitant]
     Indication: RASH PRURITIC
     Route: 065
     Dates: start: 20160217, end: 20160224
  7. SIMPONI [Suspect]
     Active Substance: GOLIMUMAB
     Indication: COLITIS ULCERATIVE
     Route: 058
     Dates: start: 201610, end: 20170321
  8. BETAMETHASONE. [Concomitant]
     Active Substance: BETAMETHASONE
     Route: 030
     Dates: start: 20170123, end: 20170124

REACTIONS (8)
  - Inappropriate schedule of drug administration [Unknown]
  - Off label use [Unknown]
  - Cervix disorder [Not Recovered/Not Resolved]
  - Premature labour [Recovered/Resolved]
  - Rash pruritic [Recovered/Resolved]
  - Exposure during pregnancy [Recovered/Resolved]
  - Colitis ulcerative [Recovered/Resolved]
  - Tooth extraction [Recovered/Resolved]

NARRATIVE: CASE EVENT DATE: 20151106
